FAERS Safety Report 8050649-2 (Version None)
Quarter: 2012Q1

REPORT INFORMATION
  Report Type: 
  Country: None (occurrence: None)
  Receive Date: 20120117
  Receipt Date: 20120110
  Transmission Date: 20120608
  Serious: Yes (Death, Other)
  Sender: FDA-Public Use
  Company Number: US-PFIZER INC-2011300769

PATIENT
  Sex: Female

DRUGS (9)
  1. ALBUTEROL SULFATE [Concomitant]
     Dosage: 6.7 GM INHALED EVERY 4 HOURS
  2. TRACLEER [Suspect]
     Indication: PULMONARY HYPERTENSION
     Dosage: 62.5 UNK, 1X/DAY
  3. TRACLEER [Suspect]
     Dosage: 125 MG, 2X/DAY
     Dates: start: 20100601
  4. POTASSIUM CHLORIDE [Concomitant]
     Dosage: 20 MEQ, 3X/DAY
  5. SINGULAIR [Concomitant]
     Dosage: 10 MG, 1X/DAY
  6. REVATIO [Suspect]
     Indication: PULMONARY ARTERIAL HYPERTENSION
     Dosage: 20 MG, 3X/DAY
     Dates: start: 20100701
  7. LEVOTHYROXINE [Concomitant]
     Dosage: 100 UG, 1X/DAY
  8. FUROSEMIDE [Concomitant]
     Dosage: 40 MG, 2X/DAY (^40 MG IN THE MORNING AND 40 MG IN THE AFERNOON^)
  9. NASACORT [Concomitant]
     Dosage: 2 SPRAYS

REACTIONS (18)
  - RESPIRATORY FAILURE [None]
  - FALL [None]
  - LACERATION [None]
  - RHINITIS [None]
  - EYE SWELLING [None]
  - HYPOTHYROIDISM [None]
  - ANXIETY [None]
  - CONTUSION [None]
  - DEATH [None]
  - DIZZINESS [None]
  - AMNESIA [None]
  - CHEST PAIN [None]
  - ECCHYMOSIS [None]
  - TREMOR [None]
  - CEREBRAL HAEMORRHAGE [None]
  - PNEUMONIA [None]
  - UNRESPONSIVE TO STIMULI [None]
  - DYSPNOEA [None]
